FAERS Safety Report 6614455-5 (Version None)
Quarter: 2010Q1

REPORT INFORMATION
  Report Type: 
  Country: None (occurrence: None)
  Receive Date: 20100304
  Receipt Date: 20100222
  Transmission Date: 20100710
  Serious: Yes (Hospitalization)
  Sender: FDA-Public Use
  Company Number: DE-ABBOTT-10P-062-0627738-00

PATIENT
  Age: 31 Year
  Sex: Female

DRUGS (8)
  1. HUMIRA [Suspect]
     Indication: RHEUMATOID ARTHRITIS
     Dates: start: 20080101, end: 20080601
  2. ENBREL [Suspect]
     Indication: RHEUMATOID ARTHRITIS
     Dates: start: 20010101, end: 20071201
  3. DECORTIN H [Concomitant]
     Indication: DRUG USE FOR UNKNOWN INDICATION
  4. DECORTIN [Concomitant]
     Indication: DRUG USE FOR UNKNOWN INDICATION
  5. DICLOFENAC [Concomitant]
     Indication: DRUG USE FOR UNKNOWN INDICATION
  6. CALCIMAGON-D 3 [Concomitant]
     Indication: DRUG USE FOR UNKNOWN INDICATION
  7. QUANTALAN [Concomitant]
     Indication: DRUG USE FOR UNKNOWN INDICATION
  8. QUENSYL [Concomitant]
     Indication: DRUG USE FOR UNKNOWN INDICATION

REACTIONS (9)
  - ARTHRALGIA [None]
  - DRUG INEFFECTIVE [None]
  - MONOPLEGIA [None]
  - MUSCULAR WEAKNESS [None]
  - MYALGIA [None]
  - MYOSITIS [None]
  - MYOSITIS OSSIFICANS [None]
  - RAYNAUD'S PHENOMENON [None]
  - SYSTEMIC LUPUS ERYTHEMATOSUS [None]
